FAERS Safety Report 15405861 (Version 2)
Quarter: 2018Q4

REPORT INFORMATION
  Report Type: Report from Study
  Country: NL (occurrence: NL)
  Receive Date: 20180920
  Receipt Date: 20181003
  Transmission Date: 20190204
  Serious: Yes (Death)
  Sender: FDA-Public Use
  Company Number: NL-TOLMAR, INC.-2018NL009269

PATIENT

DRUGS (8)
  1. ELIGARD [Suspect]
     Active Substance: LEUPROLIDE ACETATE
     Indication: PRODUCT USED FOR UNKNOWN INDICATION
     Dosage: 22.5 MG, 1 X PER 3 MONTHS
     Route: 058
     Dates: start: 20171017
  2. CYANOCOBALAMIN. [Concomitant]
     Active Substance: CYANOCOBALAMIN
  3. ELIGARD [Suspect]
     Active Substance: LEUPROLIDE ACETATE
     Dosage: 22.5 MG, 1 X PER 3 MONTHS
     Route: 058
     Dates: start: 20180710
  4. APRACLONIDINE [Concomitant]
     Active Substance: APRACLONIDINE HYDROCHLORIDE
  5. LISINOPRIL. [Concomitant]
     Active Substance: LISINOPRIL
  6. PARACETAMOL [Concomitant]
     Active Substance: ACETAMINOPHEN
  7. METOPROLOL. [Concomitant]
     Active Substance: METOPROLOL
  8. DEPAKINE                           /00228501/ [Concomitant]
     Active Substance: VALPROIC ACID

REACTIONS (1)
  - Prostate cancer [Fatal]
